FAERS Safety Report 25669824 (Version 1)
Quarter: 2025Q3

REPORT INFORMATION
  Report Type: Spontaneous
  Country: CN (occurrence: CN)
  Receive Date: 20250812
  Receipt Date: 20250812
  Transmission Date: 20251021
  Serious: Yes (Disabling, Other)
  Sender: CATALYST PHARMA
  Company Number: CN-CATALYSTPHARMACEUTICALPARTNERS-CN-CATA-25-01122

PATIENT
  Age: 36 Year
  Sex: Female

DRUGS (3)
  1. FYCOMPA [Suspect]
     Active Substance: PERAMPANEL
     Indication: Epilepsy
     Dosage: 4.0 MILLIGRAM(S) (4 MILLIGRAM(S), 1 IN 1 DAY)
     Route: 048
     Dates: start: 20230605, end: 20250506
  2. FYCOMPA [Suspect]
     Active Substance: PERAMPANEL
     Dosage: 7.0 MILLIGRAM(S) (7 MILLIGRAM(S), 1 IN 1 DAY)
     Route: 048
     Dates: start: 20250507, end: 20250729
  3. FYCOMPA [Suspect]
     Active Substance: PERAMPANEL
     Dosage: 4.0 MILLIGRAM(S) (4 MILLIGRAM(S), 1 IN 1 DAY)
     Route: 048
     Dates: start: 20250730

REACTIONS (3)
  - Sleep disorder [Unknown]
  - Epilepsy [Unknown]
  - Fall [Unknown]

NARRATIVE: CASE EVENT DATE: 20250501
